FAERS Safety Report 16457768 (Version 1)
Quarter: 2019Q2

REPORT INFORMATION
  Report Type: Report from Study
  Country: US (occurrence: US)
  Receive Date: 20190620
  Receipt Date: 20190620
  Transmission Date: 20190711
  Serious: Yes (Other)
  Sender: FDA-Public Use
  Company Number: US-ROCHE-2339020

PATIENT
  Age: 60 Year
  Sex: Female
  Weight: 74.6 kg

DRUGS (5)
  1. LEVOTHYROXINE. [Concomitant]
     Active Substance: LEVOTHYROXINE
  2. SOMATROPIN. [Suspect]
     Active Substance: SOMATROPIN
     Indication: PRODUCT USED FOR UNKNOWN INDICATION
     Route: 058
  3. HYDROCORTISONE. [Concomitant]
     Active Substance: HYDROCORTISONE
  4. ESTRADIOL. [Concomitant]
     Active Substance: ESTRADIOL
  5. PROGESTERONE. [Concomitant]
     Active Substance: PROGESTERONE

REACTIONS (3)
  - Diplopia [Unknown]
  - Hypothalamo-pituitary disorder [Unknown]
  - Headache [Unknown]

NARRATIVE: CASE EVENT DATE: 201310
